FAERS Safety Report 13487714 (Version 1)
Quarter: 2017Q2

REPORT INFORMATION
  Report Type: Spontaneous
  Country: US (occurrence: US)
  Receive Date: 20170426
  Receipt Date: 20170426
  Transmission Date: 20170830
  Serious: No
  Sender: FDA-Public Use
  Company Number: US-ALKERMES INC.-ALK-2016-003490

PATIENT
  Age: 29 Year
  Sex: Male
  Weight: 96.6 kg

DRUGS (6)
  1. VISTARIL [Concomitant]
     Active Substance: HYDROXYZINE PAMOATE
     Indication: PRODUCT USED FOR UNKNOWN INDICATION
  2. ZOLOFT [Concomitant]
     Active Substance: SERTRALINE HYDROCHLORIDE
     Indication: PRODUCT USED FOR UNKNOWN INDICATION
  3. VOLTAREN [Concomitant]
     Active Substance: DICLOFENAC SODIUM
     Indication: PRODUCT USED FOR UNKNOWN INDICATION
  4. SEROQUEL [Concomitant]
     Active Substance: QUETIAPINE FUMARATE
     Indication: PRODUCT USED FOR UNKNOWN INDICATION
  5. PENVIK [Concomitant]
     Indication: PRODUCT USED FOR UNKNOWN INDICATION
  6. VIVITROL [Suspect]
     Active Substance: NALTREXONE
     Indication: ALCOHOLISM
     Dosage: 380 MG, QMO
     Route: 030
     Dates: start: 20161031

REACTIONS (2)
  - Toothache [Not Recovered/Not Resolved]
  - Tooth pulp haemorrhage [Not Recovered/Not Resolved]

NARRATIVE: CASE EVENT DATE: 20161110
